FAERS Safety Report 7644101-3 (Version None)
Quarter: 2011Q3

REPORT INFORMATION
  Report Type: 
  Country: None (occurrence: None)
  Receive Date: 20110729
  Receipt Date: 20110721
  Transmission Date: 20111222
  Serious: Yes (Hospitalization)
  Sender: FDA-Public Use
  Company Number: US-JNJFOC-20110709829

PATIENT
  Sex: Female
  Weight: 46.27 kg

DRUGS (11)
  1. DURAGESIC-100 [Suspect]
     Route: 062
  2. DURAGESIC-100 [Suspect]
     Indication: NERVE INJURY
     Route: 062
  3. OXYCODONE HCL [Concomitant]
     Indication: PAIN
     Route: 048
  4. DURAGESIC-100 [Suspect]
     Indication: SOFT TISSUE INJURY
     Route: 062
  5. DURAGESIC-100 [Suspect]
     Route: 062
  6. XANAX [Concomitant]
     Indication: PANIC ATTACK
     Dosage: 1-2 TIMES A DAY
     Route: 048
  7. PEPCID [Concomitant]
     Indication: GASTROOESOPHAGEAL REFLUX DISEASE
     Route: 048
  8. DURAGESIC-100 [Suspect]
     Indication: INTERVERTEBRAL DISC DEGENERATION
     Route: 062
  9. XANAX [Concomitant]
     Indication: ANXIETY
     Dosage: 1-2 TIMES A DAY
     Route: 048
  10. DURAGESIC-100 [Suspect]
     Route: 062
  11. CLARITIN [Concomitant]
     Indication: MULTIPLE ALLERGIES
     Route: 048

REACTIONS (16)
  - VOMITING [None]
  - CROHN'S DISEASE [None]
  - PALPITATIONS [None]
  - PARAESTHESIA [None]
  - BODY TEMPERATURE FLUCTUATION [None]
  - MYDRIASIS [None]
  - OCULAR ICTERUS [None]
  - DECREASED APPETITE [None]
  - DIARRHOEA [None]
  - OCULAR HYPERAEMIA [None]
  - WITHDRAWAL SYNDROME [None]
  - HYPOAESTHESIA ORAL [None]
  - HYPERHIDROSIS [None]
  - GALLBLADDER PAIN [None]
  - INTESTINAL OBSTRUCTION [None]
  - INSOMNIA [None]
